FAERS Safety Report 4610176-9 (Version None)
Quarter: 2005Q1

REPORT INFORMATION
  Report Type: 
  Country: None (occurrence: None)
  Receive Date: 20050314
  Receipt Date: 20050304
  Transmission Date: 20050727
  Serious: Yes (Other)
  Sender: FDA-Public Use
  Company Number: HQWYE851604MAR05

PATIENT
  Age: 6 Month
  Sex: Male

DRUGS (2)
  1. SUPRAX [Suspect]
     Indication: INFECTION PROPHYLAXIS
     Dosage: 100 MG DAILY ORAL
     Route: 048
  2. CETIRIZINE (CETIRIZINE) [Concomitant]

REACTIONS (1)
  - PSYCHOMOTOR HYPERACTIVITY [None]
